FAERS Safety Report 19439637 (Version 3)
Quarter: 2021Q3

REPORT INFORMATION
  Report Type: Spontaneous
  Country: FR (occurrence: FR)
  Receive Date: 20210619
  Receipt Date: 20210809
  Transmission Date: 20211014
  Serious: Yes (Death, Life-Threatening, Hospitalization, Other)
  Sender: FDA-Public Use
  Company Number: NVSC2020FR026282

PATIENT
  Age: 50 Year
  Sex: Male
  Weight: 78 kg

DRUGS (1)
  1. TACROLIMUS. [Suspect]
     Active Substance: TACROLIMUS
     Indication: IMMUNOSUPPRESSION
     Dosage: UNK UNK, QD
     Route: 048
     Dates: start: 20190812

REACTIONS (3)
  - Acinetobacter bacteraemia [Fatal]
  - Septic shock [Fatal]
  - Device related infection [Fatal]

NARRATIVE: CASE EVENT DATE: 20190924
